FAERS Safety Report 25723551 (Version 1)
Quarter: 2025Q3

REPORT INFORMATION
  Report Type: Spontaneous
  Country: US (occurrence: US)
  Receive Date: 20250825
  Receipt Date: 20250825
  Transmission Date: 20251021
  Serious: No
  Sender: ANI
  Company Number: US-ANIPHARMA-2025-US-008386

PATIENT
  Sex: Female

DRUGS (9)
  1. CORTICOTROPIN [Suspect]
     Active Substance: CORTICOTROPIN
     Indication: Systemic lupus erythematosus
     Route: 058
  2. IMITREX [Concomitant]
     Active Substance: SUMATRIPTAN SUCCINATE
  3. MELOXICAM [Concomitant]
     Active Substance: MELOXICAM
  4. FLEXERIL [Concomitant]
     Active Substance: CYCLOBENZAPRINE HYDROCHLORIDE
  5. METOPROLOL SUCCINATE [Concomitant]
     Active Substance: METOPROLOL SUCCINATE
  6. PROTONIX [Concomitant]
     Active Substance: PANTOPRAZOLE SODIUM
  7. BUMEX [Concomitant]
     Active Substance: BUMETANIDE
     Indication: Product used for unknown indication
  8. ASPIRIN [Concomitant]
     Active Substance: ASPIRIN
  9. LEFLUNOMIDE [Concomitant]
     Active Substance: LEFLUNOMIDE

REACTIONS (2)
  - Product administration interrupted [Not Recovered/Not Resolved]
  - Injection site rash [Recovered/Resolved]
